FAERS Safety Report 9548240 (Version 1)
Quarter: 2013Q2

REPORT INFORMATION
  Report Type: Spontaneous
  Country: US (occurrence: None)
  Receive Date: 20130627
  Receipt Date: 20130627
  Transmission Date: 20140414
  Serious: Yes (Other)
  Sender: FDA-Public Use
  Company Number: 1000045153

PATIENT
  Age: 80 Year
  Sex: Female

DRUGS (8)
  1. LINZESS [Suspect]
     Indication: CONSTIPATION
     Dosage: 145 MCG (145 MCG, 1 IN 1 D), ORAL
     Route: 048
     Dates: start: 20130511
  2. XANAX [Concomitant]
  3. AMITRIPTYLINE (AMITRIPTYLINE) (AMITRIPTYLINE)? [Concomitant]
  4. PAXIL (PAROXETINE) (PAROXETINE) [Concomitant]
  5. TOPROL (METOPROLOL SUCCINATE) (METOPROLOL SUCCINATE) [Concomitant]
  6. PANTOPRAZOLE (PANTOPRAZOLE) (PANTOPRAZOLE) [Concomitant]
  7. ZOFRAN (ONDANSETRON) (ONDANSETRON) [Concomitant]
  8. LOTREL (AMLODIPINE, BENAZEPRIL) (AMLODIPINE, BENAZEPRIL) [Concomitant]

REACTIONS (2)
  - Anxiety [None]
  - Tremor [None]
